FAERS Safety Report 20136570 (Version 2)
Quarter: 2022Q2

REPORT INFORMATION
  Report Type: Spontaneous
  Country: US (occurrence: US)
  Receive Date: 20211201
  Receipt Date: 20220427
  Transmission Date: 20220721
  Serious: No
  Sender: FDA-Public Use
  Company Number: US-MYLANLABS-2021M1087948

PATIENT
  Sex: Female

DRUGS (2)
  1. LEVOTHYROXINE [Suspect]
     Active Substance: LEVOTHYROXINE
     Indication: Product used for unknown indication
     Dosage: 50 MICROGRAM, QD (ONE TABLET A DAY FOR SIX DAYS)
  2. LEVOTHYROXINE [Suspect]
     Active Substance: LEVOTHYROXINE
     Dosage: 75 MICROGRAM, QD (ONE AND A HALF TABLET ON THE SEVENTH DAY)

REACTIONS (3)
  - Agitation [Unknown]
  - Blood pressure increased [Unknown]
  - Incorrect dose administered [Unknown]
